FAERS Safety Report 8595322-7 (Version None)
Quarter: 2012Q3

REPORT INFORMATION
  Report Type: 
  Country: None (occurrence: None)
  Receive Date: 20120807
  Receipt Date: 20120807
  Transmission Date: 20120928
  Serious: Yes (Hospitalization)
  Sender: FDA-Public Use
  Company Number: None

PATIENT
  Sex: Male
  Weight: 77.64 kg

DRUGS (4)
  1. CARBOPLATIN [Suspect]
  2. PACLITAXEL [Suspect]
  3. CETUXIMAB (ERBITUX) 470 MG [Suspect]
  4. BEVACIZUMAB (RHUMAB VEGF) 1128 MG [Suspect]

REACTIONS (5)
  - FLATULENCE [None]
  - ABDOMINAL PAIN [None]
  - BUNDLE BRANCH BLOCK LEFT [None]
  - ILEUS [None]
  - PNEUMONIA [None]
